FAERS Safety Report 4941541-8 (Version None)
Quarter: 2006Q1

REPORT INFORMATION
  Report Type: 
  Country: None (occurrence: None)
  Receive Date: 20060313
  Receipt Date: 20051111
  Transmission Date: 20060701
  Serious: Yes (Hospitalization, Disabling, Other)
  Sender: FDA-Public Use
  Company Number: US-MERCK-0511USA02057

PATIENT
  Age: 62 Year
  Sex: Male
  Weight: 71 kg

DRUGS (7)
  1. VIOXX [Suspect]
     Indication: POLYMYALGIA RHEUMATICA
     Route: 048
     Dates: start: 20000201, end: 20001201
  2. VIOXX [Suspect]
     Indication: INTERVERTEBRAL DISC PROTRUSION
     Route: 048
     Dates: start: 20000201, end: 20001201
  3. LIPITOR [Concomitant]
     Indication: BLOOD CHOLESTEROL INCREASED
     Route: 065
     Dates: start: 19990501
  4. PREDNISONE [Concomitant]
     Route: 065
     Dates: start: 20000301, end: 20010601
  5. K-DUR 10 [Concomitant]
     Route: 065
  6. SONATA [Concomitant]
     Indication: SLEEP DISORDER
     Route: 065
  7. CLINDAMYCIN [Concomitant]
     Indication: INFECTION
     Route: 065

REACTIONS (15)
  - AMNESIA [None]
  - ANGINA PECTORIS [None]
  - ANXIETY [None]
  - CEREBROVASCULAR ACCIDENT [None]
  - CHEST PAIN [None]
  - CORONARY ARTERY DISEASE [None]
  - DEPRESSION [None]
  - HEADACHE [None]
  - INJURY [None]
  - INTERVERTEBRAL DISC PROTRUSION [None]
  - MYOCARDIAL INFARCTION [None]
  - PARAESTHESIA [None]
  - TENDON RUPTURE [None]
  - UMBILICAL HERNIA [None]
  - VISION BLURRED [None]
